FAERS Safety Report 5906659-1 (Version None)
Quarter: 2008Q3

REPORT INFORMATION
  Report Type: 
  Country: None (occurrence: None)
  Receive Date: 20080930
  Receipt Date: 20080915
  Transmission Date: 20090109
  Serious: Yes (Death, Hospitalization)
  Sender: FDA-Public Use
  Company Number: 2008S1014570

PATIENT
  Age: 19 Year
  Sex: Female

DRUGS (10)
  1. AZATHIOPRINE [Suspect]
     Indication: LUNG TRANSPLANT
     Dosage: 6 MG/KG; ORAL
     Route: 048
  2. NEORAL [Suspect]
     Indication: LUNG TRANSPLANT
     Dosage: 4.5 MG/KG; ORAL
     Route: 048
  3. PREDNISONE [Suspect]
     Indication: LUNG TRANSPLANT
     Dosage: 1 GM; ORAL
     Route: 048
  4. CEFTAZIDIME [Concomitant]
  5. FUNGIZONE [Concomitant]
  6. GENTAMICIN SULFATE [Concomitant]
  7. METHYLPREDNISOLONE 16MG TAB [Concomitant]
  8. SPORANOX [Concomitant]
  9. TARGOCID [Concomitant]
  10. CYCLOSPHORINE (CICLOSPORIN) [Concomitant]

REACTIONS (13)
  - ABSCESS FUNGAL [None]
  - ACUTE PULMONARY OEDEMA [None]
  - AORTIC VALVE INCOMPETENCE [None]
  - ASPERGILLOSIS [None]
  - CARDIAC ARREST [None]
  - CARDIAC VALVE VEGETATION [None]
  - FUNGAL ENDOCARDITIS [None]
  - HYPOTENSION [None]
  - JOINT SWELLING [None]
  - NIGHT SWEATS [None]
  - PLEURAL EFFUSION [None]
  - SEPSIS [None]
  - TRANSPLANT REJECTION [None]
